FAERS Safety Report 14173201 (Version 2)
Quarter: 2018Q1

REPORT INFORMATION
  Report Type: Spontaneous
  Country: GB (occurrence: GB)
  Receive Date: 20171109
  Receipt Date: 20180308
  Transmission Date: 20180508
  Serious: Yes (Other)
  Sender: FDA-Public Use
  Company Number: GB-LEO PHARMA-305355

PATIENT
  Sex: Male

DRUGS (11)
  1. PROTOPIC [Suspect]
     Active Substance: TACROLIMUS
     Indication: CHRONIC GRAFT VERSUS HOST DISEASE IN SKIN
     Dosage: THERAPEUTIC
     Route: 065
  2. CYTARABINE. [Concomitant]
     Active Substance: CYTARABINE
     Dates: start: 20161219
  3. FILGRASTIM [Concomitant]
     Active Substance: FILGRASTIM
     Indication: CHEMOTHERAPY
     Dates: start: 20161219
  4. CIDOFOVIR. [Concomitant]
     Active Substance: CIDOFOVIR
     Indication: ADENOVIRUS INFECTION
     Dates: start: 20170517
  5. IDARUBICIN [Concomitant]
     Active Substance: IDARUBICIN
     Indication: CHEMOTHERAPY
     Dates: start: 20161219
  6. FOSCARNET [Concomitant]
     Active Substance: FOSCARNET
     Indication: CYTOMEGALOVIRUS INFECTION
     Dates: start: 201704
  7. CYTARABINE. [Concomitant]
     Active Substance: CYTARABINE
     Indication: CHEMOTHERAPY
     Dates: start: 20160930
  8. GEMTUZUMAB OZOGAMICIN [Concomitant]
     Active Substance: GEMTUZUMAB OZOGAMICIN
     Indication: CHEMOTHERAPY
     Dates: start: 20160930
  9. DAUNORUBICIN [Concomitant]
     Active Substance: DAUNORUBICIN
     Indication: CHEMOTHERAPY
     Dates: start: 20160930
  10. FLUDARABINE [Concomitant]
     Active Substance: FLUDARABINE PHOSPHATE
     Indication: CHEMOTHERAPY
     Dates: start: 20161219
  11. ISAVUCONAZOLE [Concomitant]
     Active Substance: ISAVUCONAZOLE
     Indication: PNEUMONIA FUNGAL
     Dates: start: 20170704

REACTIONS (2)
  - Product use in unapproved indication [Unknown]
  - Sepsis [Unknown]
